FAERS Safety Report 9110144 (Version 1)
Quarter: 2013Q1

REPORT INFORMATION
  Report Type: Spontaneous
  Country: GB (occurrence: GB)
  Receive Date: 20130222
  Receipt Date: 20130222
  Transmission Date: 20140127
  Serious: Yes (Death)
  Sender: FDA-Public Use
  Company Number: GB-JNJFOC-20130204356

PATIENT
  Age: 8 Decade
  Sex: Male

DRUGS (3)
  1. ZYTIGA [Suspect]
     Indication: PROSTATE CANCER
     Route: 048
  2. PREDNISOLONE [Concomitant]
     Indication: PRODUCT USED FOR UNKNOWN INDICATION
     Route: 065
  3. UNKNOWN MEDICATION [Concomitant]
     Indication: PRODUCT USED FOR UNKNOWN INDICATION
     Route: 065

REACTIONS (2)
  - Sepsis [Fatal]
  - Liver function test abnormal [Fatal]
